FAERS Safety Report 5713715-X (Version None)
Quarter: 2008Q2

REPORT INFORMATION
  Report Type: 
  Country: None (occurrence: None)
  Receive Date: 20080418
  Receipt Date: 20080409
  Transmission Date: 20081010
  Serious: Yes (Hospitalization)
  Sender: FDA-Public Use
  Company Number: PHNU2008DE01250

PATIENT
  Age: 66 Year
  Sex: Male

DRUGS (2)
  1. VALSARTAN [Suspect]
     Indication: HYPERTENSION
     Dosage: 80 MG, BID SINCE 4-5 YEARS, ORAL
     Route: 048
  2. METOPROLOL SUCCINATE [Suspect]
     Indication: HYPERTENSION
     Dosage: 47.5 MG,QD, INTRAVENOUS
     Route: 042

REACTIONS (5)
  - ACUTE SINUSITIS [None]
  - CYST [None]
  - DYSPNOEA [None]
  - HEADACHE [None]
  - POLYP [None]
